FAERS Safety Report 9819282 (Version 2)
Quarter: 2014Q1

REPORT INFORMATION
  Report Type: Spontaneous
  Country: US (occurrence: US)
  Receive Date: 20140115
  Receipt Date: 20140116
  Transmission Date: 20141002
  Serious: Yes (Death, Life-Threatening, Hospitalization, Other)
  Sender: FDA-Public Use
  Company Number: US-009507513-1401USA004872

PATIENT
  Sex: Male
  Weight: 78.46 kg

DRUGS (1)
  1. JANUMET [Suspect]
     Indication: TYPE 2 DIABETES MELLITUS
     Dosage: 50-500 MG BID
     Route: 048
     Dates: start: 20100406, end: 20101031

REACTIONS (3)
  - Pancreatic carcinoma metastatic [Fatal]
  - Thrombosis [Unknown]
  - Nephrolithiasis [Unknown]
